FAERS Safety Report 4433275-3 (Version None)
Quarter: 2004Q3

REPORT INFORMATION
  Report Type: 
  Country: None (occurrence: None)
  Receive Date: 20040824
  Receipt Date: 20040809
  Transmission Date: 20050211
  Serious: Yes (Hospitalization)
  Sender: FDA-Public Use
  Company Number: 04P-163-0269963-00

PATIENT
  Age: 55 Year
  Sex: Male
  Weight: 103.8737 kg

DRUGS (12)
  1. VICODIN ES [Suspect]
     Indication: PAIN
     Dates: start: 20040123, end: 20040211
  2. DURAGESIC [Suspect]
     Indication: PAIN
     Dosage: 75 UG/HR 1 IN 72 HRS., TRANSDERMAL
     Route: 062
     Dates: start: 20031101, end: 20040211
  3. AMIODARONE [Concomitant]
  4. CLONIDINE HCL [Concomitant]
  5. WARFARIN SODIUM [Concomitant]
  6. DIGOXIN [Concomitant]
  7. AMLODIPINE BESYLATE [Concomitant]
  8. PRAVASTATIN SODIUM [Concomitant]
  9. TEMAZEPAM [Concomitant]
  10. METOPROLOL [Concomitant]
  11. RANITIDINE HYDROCHLORIDE [Concomitant]
  12. CHLORDIAZEPOXIDE [Concomitant]

REACTIONS (26)
  - ACUTE RESPIRATORY FAILURE [None]
  - AGGRESSION [None]
  - AMNESIA [None]
  - ANAEMIA [None]
  - ASPIRATION [None]
  - ASTHENIA [None]
  - CEREBRAL ATROPHY [None]
  - CHRONIC OBSTRUCTIVE AIRWAYS DISEASE [None]
  - CONFUSIONAL STATE [None]
  - CONVULSION [None]
  - DRUG DEPENDENCE [None]
  - FALL [None]
  - HYPERCAPNIA [None]
  - HYPOKALAEMIA [None]
  - HYPOMAGNESAEMIA [None]
  - HYPOPHOSPHATAEMIA [None]
  - INCOHERENT [None]
  - INFECTION [None]
  - MENTAL STATUS CHANGES [None]
  - METABOLIC ENCEPHALOPATHY [None]
  - OVERDOSE [None]
  - PLEURAL DISORDER [None]
  - RESPIRATORY TRACT INFECTION [None]
  - SEPSIS [None]
  - SINUSITIS [None]
  - SOMNOLENCE [None]
